FAERS Safety Report 7579172-6 (Version None)
Quarter: 2011Q2

REPORT INFORMATION
  Report Type: 
  Country: None (occurrence: None)
  Receive Date: 20110628
  Receipt Date: 20090918
  Transmission Date: 20111010
  Serious: Yes (Disabling, Other)
  Sender: FDA-Public Use
  Company Number: US-BAYER-200919063NA

PATIENT
  Sex: Female
  Weight: 94.785 kg

DRUGS (20)
  1. MULTIHANCE [Suspect]
     Indication: NUCLEAR MAGNETIC RESONANCE IMAGING
  2. HECTOROL [Concomitant]
  3. OPTIMARK [Suspect]
     Indication: NUCLEAR MAGNETIC RESONANCE IMAGING
  4. POTASSIUM CHLORIDE [Concomitant]
  5. PROCRIT [Concomitant]
  6. GADOLINIUM IN UNSPECIFIED DRUG [Suspect]
     Indication: COMPUTERISED TOMOGRAM
     Dosage: UNK
     Route: 042
     Dates: start: 20010503, end: 20010503
  7. METOPROLOL TARTRATE [Concomitant]
  8. ARANESP [Concomitant]
  9. GADOLINIUM IN UNSPECIFIED DRUG [Suspect]
     Indication: ANGIOGRAM
     Dosage: UNK
     Dates: start: 20061012, end: 20061012
  10. GADOLINIUM IN UNSPECIFIED DRUG [Suspect]
     Indication: VENOGRAM
     Dosage: UNK
     Route: 042
     Dates: start: 20061019, end: 20061019
  11. GADOLINIUM IN UNSPECIFIED DRUG [Suspect]
     Dosage: 20 ML, UNK
     Route: 042
     Dates: start: 20070131, end: 20070131
  12. VISTARIL [Concomitant]
  13. ACETYLSALICYLIC ACID SRT [Concomitant]
  14. MAGNEVIST [Suspect]
     Indication: NUCLEAR MAGNETIC RESONANCE IMAGING
  15. NEPHROVITE [VIT C,VIT H,B5,B12,B9,B3,B6,B2,B1 HCL] [Concomitant]
  16. NORVASC [Concomitant]
  17. RENAGEL [Concomitant]
  18. OMNISCAN [Suspect]
     Indication: NUCLEAR MAGNETIC RESONANCE IMAGING
  19. ENALAPRIL MALEATE [Concomitant]
  20. VITAMIN B6 [Concomitant]

REACTIONS (10)
  - ANXIETY [None]
  - QUALITY OF LIFE DECREASED [None]
  - PAIN [None]
  - GENERAL PHYSICAL HEALTH DETERIORATION [None]
  - NEPHROGENIC SYSTEMIC FIBROSIS [None]
  - SKIN FIBROSIS [None]
  - MOBILITY DECREASED [None]
  - DEFORMITY [None]
  - EMOTIONAL DISTRESS [None]
  - FIBROSIS [None]
